FAERS Safety Report 6761387-8 (Version None)
Quarter: 2010Q2

REPORT INFORMATION
  Report Type: 
  Country: None (occurrence: None)
  Receive Date: 20100607
  Receipt Date: 20100526
  Transmission Date: 20101027
  Serious: Yes (Other)
  Sender: FDA-Public Use
  Company Number: SE-1181513

PATIENT
  Age: 83 Year
  Sex: Female

DRUGS (5)
  1. AZOPT [Suspect]
     Indication: GLAUCOMA
     Dosage: 1 GTT BID, OPHTHALMIC
     Route: 047
     Dates: start: 20010310, end: 20100328
  2. LIPITOR [Concomitant]
  3. SIMVASTATIN [Concomitant]
  4. RAMIPRIL [Concomitant]
  5. PRAVASTATIN (PRAVAASTATIN) [Concomitant]

REACTIONS (4)
  - CONDITION AGGRAVATED [None]
  - MENTAL DISORDER [None]
  - TACHYCARDIA [None]
  - UNEVALUABLE EVENT [None]
